FAERS Safety Report 12121423 (Version 1)
Quarter: 2016Q1

REPORT INFORMATION
  Report Type: Spontaneous
  Country: US (occurrence: US)
  Receive Date: 20160226
  Receipt Date: 20160226
  Transmission Date: 20160526
  Serious: No
  Sender: FDA-Public Use
  Company Number: US-ALLERGAN-1414300US

PATIENT
  Age: 66 Year
  Sex: Male

DRUGS (1)
  1. REFRESH OPTIVE [Suspect]
     Active Substance: CARBOXYMETHYLCELLULOSE SODIUM\GLYCERIN
     Indication: EYE OPERATION
     Dosage: 2 GTT, UNK
     Route: 047
     Dates: start: 20140613, end: 20140621

REACTIONS (1)
  - Vision blurred [Recovered/Resolved]
